FAERS Safety Report 6936372-3 (Version None)
Quarter: 2010Q3

REPORT INFORMATION
  Report Type: 
  Country: None (occurrence: None)
  Receive Date: 20100823
  Receipt Date: 20100614
  Transmission Date: 20110219
  Serious: No
  Sender: FDA-Public Use
  Company Number: US-MYLANLABS-2010S1010550

PATIENT
  Sex: Female

DRUGS (1)
  1. MYCOPHENOLATE MOFETIL [Suspect]

REACTIONS (3)
  - ABDOMINAL DISCOMFORT [None]
  - ASTHENIA [None]
  - MUSCULAR WEAKNESS [None]
